FAERS Safety Report 8524937-7 (Version None)
Quarter: 2012Q3

REPORT INFORMATION
  Report Type: 
  Country: None (occurrence: None)
  Receive Date: 20120720
  Receipt Date: 20120716
  Transmission Date: 20120928
  Serious: No
  Sender: FDA-Public Use
  Company Number: US-009507513-1207USA005300

PATIENT

DRUGS (4)
  1. CHONDROITIN [Concomitant]
  2. ALLEGRA [Concomitant]
  3. GLUCOSAMINE [Concomitant]
  4. NASONEX [Suspect]
     Indication: HYPERSENSITIVITY
     Dosage: 100 MICROGRAM, QD
     Route: 045
     Dates: start: 20110101, end: 20120601

REACTIONS (2)
  - EYE SWELLING [None]
  - EYE PAIN [None]
